FAERS Safety Report 9131128 (Version 3)
Quarter: 2013Q2

REPORT INFORMATION
  Report Type: Report from Study
  Country: JP (occurrence: JP)
  Receive Date: 20130301
  Receipt Date: 20130619
  Transmission Date: 20140414
  Serious: Yes (Death, Hospitalization, Other)
  Sender: FDA-Public Use
  Company Number: JP-GENZYME-THYM-1003659

PATIENT
  Age: 55 Year
  Sex: Female
  Weight: 48 kg

DRUGS (16)
  1. THYMOGLOBULIN [Suspect]
     Indication: APLASTIC ANAEMIA
     Dosage: 175 MG, QD
     Route: 065
     Dates: start: 20120611, end: 20120615
  2. LEVOFLOXACIN [Suspect]
     Indication: INFECTION PROPHYLAXIS
     Dosage: UNK
     Route: 065
     Dates: start: 20120611, end: 20120626
  3. CICLOSPORIN [Suspect]
     Indication: APLASTIC ANAEMIA
     Dosage: UNK
     Route: 065
     Dates: start: 20120611, end: 20120625
  4. FOSCARNET SODIUM [Suspect]
     Indication: CYTOMEGALOVIRUS TEST POSITIVE
     Dosage: UNK
     Route: 065
     Dates: start: 20120630, end: 20120706
  5. ACICLOVIR [Suspect]
     Indication: INFECTION PROPHYLAXIS
     Dosage: UNK
     Route: 065
     Dates: start: 20120611, end: 20120705
  6. CEFEPIME HYDROCHLORIDE [Suspect]
     Indication: SEPSIS
     Dosage: UNK
     Route: 065
     Dates: start: 20120607, end: 20120611
  7. FLUCONAZOL [Suspect]
     Indication: INFECTION PROPHYLAXIS
     Dosage: UNK
     Route: 065
     Dates: start: 20120607, end: 20120704
  8. LINEZOLID [Suspect]
     Indication: SEPSIS
     Dosage: UNK
     Route: 065
     Dates: start: 20120608, end: 20120611
  9. LASIX [Suspect]
     Indication: PRODUCT USED FOR UNKNOWN INDICATION
     Dosage: UNK
     Route: 065
  10. LENOGRASTIM [Suspect]
     Indication: APLASTIC ANAEMIA
     Dosage: UNK
     Route: 065
     Dates: start: 20120608, end: 20120614
  11. PIPERACILLIN W [Suspect]
     Indication: SEPSIS
     Dosage: UNK
     Route: 065
     Dates: start: 20120612, end: 20120618
  12. PIPERACILLIN W [Suspect]
     Indication: INFECTION PROPHYLAXIS
     Dosage: UNK
     Route: 065
     Dates: start: 20120704, end: 20120707
  13. METHYLPREDNISOLONE SODIUM SUCCINATE [Suspect]
     Indication: PREMEDICATION
     Dosage: UNK
     Route: 065
     Dates: start: 20120611, end: 20120615
  14. FUROSEMIDE [Suspect]
     Indication: PRODUCT USED FOR UNKNOWN INDICATION
     Dosage: UNK
     Route: 065
  15. PREDNISOLONE [Suspect]
     Indication: PREMEDICATION
     Dosage: UNK
     Route: 065
     Dates: start: 20120616, end: 20120707
  16. AMPHOTERICIN B [Suspect]
     Indication: INFECTION PROPHYLAXIS
     Dosage: UNK
     Route: 065
     Dates: start: 20120704, end: 20120706

REACTIONS (10)
  - Cerebral infarction [Fatal]
  - Encephalopathy [Fatal]
  - Hepatitis acute [Fatal]
  - Hepatic failure [Fatal]
  - Diffuse alveolar damage [Unknown]
  - Cytomegalovirus test positive [Fatal]
  - Pyrexia [Recovered/Resolved]
  - Generalised oedema [Recovered/Resolved]
  - Diarrhoea [Fatal]
  - Hypomagnesaemia [Fatal]
